FAERS Safety Report 7081905-2 (Version None)
Quarter: 2010Q4

REPORT INFORMATION
  Report Type: 
  Country: None (occurrence: None)
  Receive Date: 20101103
  Receipt Date: 20101027
  Transmission Date: 20110411
  Serious: Yes (Other)
  Sender: FDA-Public Use
  Company Number: US-PFIZER INC-2010136975

PATIENT
  Age: 62 Year
  Sex: Male
  Weight: 114 kg

DRUGS (8)
  1. BLINDED *NO SUBJECT DRUG [Suspect]
     Indication: RENAL CELL CARCINOMA
     Dosage: UNK
     Route: 048
     Dates: start: 20081010, end: 20081120
  2. BLINDED *PLACEBO [Suspect]
     Indication: RENAL CELL CARCINOMA
     Dosage: UNK
     Route: 048
     Dates: start: 20081010, end: 20081120
  3. BLINDED *SORAFENIB [Suspect]
     Indication: RENAL CELL CARCINOMA
     Dosage: UNK
     Route: 048
     Dates: start: 20081010, end: 20081120
  4. SUNITINIB MALATE [Suspect]
     Indication: RENAL CELL CARCINOMA
     Dosage: UNK
     Route: 048
     Dates: start: 20081010, end: 20081120
  5. ADVAIR DISKUS 100/50 [Concomitant]
  6. FLONASE [Concomitant]
     Route: 055
  7. MICARDIS [Concomitant]
  8. NEXIUM [Concomitant]

REACTIONS (2)
  - EXFOLIATIVE RASH [None]
  - PAIN [None]
